FAERS Safety Report 7500424-X (Version None)
Quarter: 2011Q2

REPORT INFORMATION
  Report Type: 
  Country: None (occurrence: None)
  Receive Date: 20110524
  Receipt Date: 20110310
  Transmission Date: 20111010
  Serious: No
  Sender: FDA-Public Use
  Company Number: US-BRISTOL-MYERS SQUIBB COMPANY-15599798

PATIENT
  Age: 64 Year
  Sex: Female

DRUGS (7)
  1. GLUCOTROL [Concomitant]
  2. ZOCOR [Concomitant]
  3. ONGLYZA [Suspect]
  4. GLUCOPHAGE [Concomitant]
  5. MUCINEX [Concomitant]
     Dosage: MUCINEX DM
  6. ASPIRIN [Concomitant]
  7. TOPROL-XL [Concomitant]

REACTIONS (1)
  - RASH [None]
